FAERS Safety Report 14729482 (Version 1)
Quarter: 2018Q2

REPORT INFORMATION
  Report Type: Spontaneous
  Country: US (occurrence: US)
  Receive Date: 20180402
  Receipt Date: 20180402
  Transmission Date: 20180711
  Serious: Yes (Disabling)
  Sender: FDA-Public Use
  Company Number: None

PATIENT
  Age: 68 Year
  Sex: Female
  Weight: 75.6 kg

DRUGS (8)
  1. XANAX [Concomitant]
     Active Substance: ALPRAZOLAM
  2. LEVITHYROXINE [Concomitant]
  3. RIZATRIPTAN. [Concomitant]
     Active Substance: RIZATRIPTAN
  4. ALEVE [Concomitant]
     Active Substance: NAPROXEN SODIUM
  5. VITAMIN B COMPLEX LIQUID FORM [Concomitant]
  6. CALCIUM/MAGNESIUM SUPPLEMENT LIQUID FORM [Concomitant]
  7. OXYCODONE/ACETAMINOPHEN 5-325MG TAB [Suspect]
     Active Substance: ACETAMINOPHEN\OXYCODONE HYDROCHLORIDE
     Indication: SPINAL COLUMN STENOSIS
     Dosage: ?          QUANTITY:1 TABLET(S);?
     Route: 048
     Dates: start: 20180316, end: 20180402
  8. OXYCODONE/ACETAMINOPHEN 5-325MG TAB [Suspect]
     Active Substance: ACETAMINOPHEN\OXYCODONE HYDROCHLORIDE
     Indication: PAIN
     Dosage: ?          QUANTITY:1 TABLET(S);?
     Route: 048
     Dates: start: 20180316, end: 20180402

REACTIONS (7)
  - Product quality issue [None]
  - Product substitution issue [None]
  - Nausea [None]
  - Abdominal pain upper [None]
  - Drug dose omission [None]
  - Drug effect decreased [None]
  - Abdominal discomfort [None]

NARRATIVE: CASE EVENT DATE: 20180316
